FAERS Safety Report 23517802 (Version 1)
Quarter: 2024Q1

REPORT INFORMATION
  Report Type: Spontaneous
  Country: US (occurrence: US)
  Receive Date: 20240213
  Receipt Date: 20240213
  Transmission Date: 20240410
  Serious: Yes (Hospitalization)
  Sender: FDA-Public Use
  Company Number: US-IBSA PHARMA INC.-2024IBS000038

PATIENT

DRUGS (1)
  1. TIROSINT-SOL [Suspect]
     Active Substance: LEVOTHYROXINE SODIUM
     Indication: Thyroid disorder
     Dosage: 200 MICROGRAM, QD
     Route: 048
     Dates: start: 20230822

REACTIONS (6)
  - Deep vein thrombosis [Unknown]
  - Dizziness [Unknown]
  - Ear pain [Unknown]
  - Thyroid function test abnormal [Unknown]
  - Generalised oedema [Unknown]
  - Product dose omission issue [Unknown]
